FAERS Safety Report 7424008-7 (Version None)
Quarter: 2011Q2

REPORT INFORMATION
  Report Type: 
  Country: None (occurrence: None)
  Receive Date: 20110419
  Receipt Date: 20110406
  Transmission Date: 20111010
  Serious: Yes (Death)
  Sender: FDA-Public Use
  Company Number: KE-BAXTER-2011BH010468

PATIENT
  Age: 23 Month
  Sex: Male
  Weight: 13 kg

DRUGS (10)
  1. PHENOBARBITONE [Concomitant]
     Route: 048
  2. BENZYLPENICILLIN [Concomitant]
     Indication: PRODUCT USED FOR UNKNOWN INDICATION
     Route: 042
  3. HUMAN ALBUMIN IMMUNO 5% [Suspect]
     Indication: FLUID REPLACEMENT
     Route: 042
     Dates: start: 20090706
  4. CHLORAMPHENICOL [Concomitant]
     Indication: PRODUCT USED FOR UNKNOWN INDICATION
     Route: 065
  5. WHOLE BLOOD [Concomitant]
     Indication: ANAEMIA
     Route: 065
     Dates: start: 20090707, end: 20090707
  6. QUININE SULFATE [Concomitant]
     Indication: MALARIA
     Route: 042
  7. DIAZEPAM [Concomitant]
     Indication: CONVULSION
     Route: 042
  8. PARACETAMOL [Concomitant]
     Indication: PRODUCT USED FOR UNKNOWN INDICATION
     Route: 065
  9. PHENOBARBITONE [Concomitant]
     Indication: CONVULSION
     Route: 042
  10. MARA MOJA [Concomitant]
     Indication: PYREXIA
     Route: 065
     Dates: start: 20090701

REACTIONS (1)
  - PULMONARY OEDEMA [None]
